FAERS Safety Report 21929944 (Version 1)
Quarter: 2023Q1

REPORT INFORMATION
  Report Type: Spontaneous
  Country: US (occurrence: US)
  Receive Date: 20230131
  Receipt Date: 20230131
  Transmission Date: 20230418
  Serious: No
  Sender: FDA-Public Use
  Company Number: US-APOTEX-2022AP014780

PATIENT
  Sex: Female

DRUGS (1)
  1. DESMOPRESSIN ACETATE [Suspect]
     Active Substance: DESMOPRESSIN ACETATE
     Indication: Diabetes insipidus
     Dosage: UNK, 4 TO 8 SPRAYS QD (DAILY)
     Route: 065
     Dates: start: 2022

REACTIONS (5)
  - Underdose [Unknown]
  - Incorrect dose administered by device [Unknown]
  - No adverse event [Unknown]
  - Product design issue [Unknown]
  - Product delivery mechanism issue [Unknown]
